FAERS Safety Report 21055902 (Version 1)
Quarter: 2022Q3

REPORT INFORMATION
  Report Type: Spontaneous
  Country: US (occurrence: US)
  Receive Date: 20220708
  Receipt Date: 20220708
  Transmission Date: 20221027
  Serious: Yes (Hospitalization, Other)
  Sender: FDA-Public Use
  Company Number: US-LUPIN PHARMACEUTICALS INC.-2022-09216

PATIENT
  Age: 32 Year
  Sex: Female

DRUGS (23)
  1. HYDROCORTISONE [Suspect]
     Active Substance: HYDROCORTISONE
     Indication: B precursor type acute leukaemia
     Dosage: UNK EVERY 2 WEEKS FOR FIVE CYCLES
     Route: 065
     Dates: start: 2020
  2. METHYLPREDNISOLONE [Suspect]
     Active Substance: METHYLPREDNISOLONE
     Indication: Immunosuppressant drug therapy
     Dosage: UNK
     Route: 042
     Dates: start: 202101
  3. CYCLOPHOSPHAMIDE [Suspect]
     Active Substance: CYCLOPHOSPHAMIDE
     Indication: B precursor type acute leukaemia
     Dosage: UNK PART OF HYPER-CVAD REGIMEN
     Route: 065
     Dates: start: 2019
  4. CYCLOPHOSPHAMIDE [Suspect]
     Active Substance: CYCLOPHOSPHAMIDE
     Dosage: UNK PART OF HYPER-CVAD REGIMEN
     Route: 065
     Dates: start: 202102
  5. VINCRISTINE SULFATE [Suspect]
     Active Substance: VINCRISTINE SULFATE
     Indication: B precursor type acute leukaemia
     Dosage: UNK PART OF HYPER-CVAD REGIMEN
     Route: 065
     Dates: start: 2019
  6. VINCRISTINE SULFATE [Suspect]
     Active Substance: VINCRISTINE SULFATE
     Dosage: UNK PART OF POMP REGIMEN
     Route: 065
     Dates: start: 201908
  7. VINCRISTINE SULFATE [Suspect]
     Active Substance: VINCRISTINE SULFATE
     Dosage: UNK PART OF HYPER-CVAD REGIMEN
     Route: 065
     Dates: start: 202102
  8. DOXORUBICIN HYDROCHLORIDE [Suspect]
     Active Substance: DOXORUBICIN HYDROCHLORIDE
     Indication: B precursor type acute leukaemia
     Dosage: UNK PART OF HYPER-CVAD REGIMEN
     Route: 065
     Dates: start: 2019
  9. DOXORUBICIN HYDROCHLORIDE [Suspect]
     Active Substance: DOXORUBICIN HYDROCHLORIDE
     Dosage: UNK PART OF HYPER-CVAD REGIMEN
     Route: 065
     Dates: start: 202102
  10. DEXAMETHASONE [Suspect]
     Active Substance: DEXAMETHASONE
     Indication: B precursor type acute leukaemia
     Dosage: PART OF HYPER-CVAD REGIMEN
     Route: 065
     Dates: start: 2019
  11. DEXAMETHASONE [Suspect]
     Active Substance: DEXAMETHASONE
     Dosage: UNK PART OF HYPER-CVAD REGIMEN
     Route: 065
     Dates: start: 202102
  12. METHOTREXATE [Suspect]
     Active Substance: METHOTREXATE
     Indication: B precursor type acute leukaemia
     Dosage: UNK PART OF POMP REGIMEN
     Route: 065
     Dates: start: 201908
  13. METHOTREXATE [Suspect]
     Active Substance: METHOTREXATE
     Dosage: UNK HIGH DOSE METHOTREXATE
     Route: 065
     Dates: start: 2020
  14. METHOTREXATE [Suspect]
     Active Substance: METHOTREXATE
     Dosage: UNK
     Route: 037
     Dates: start: 2019
  15. METHOTREXATE [Suspect]
     Active Substance: METHOTREXATE
     Dosage: UNK EVERY 2 WEEKS FOR FIVE CYCLES
     Route: 037
     Dates: start: 2020
  16. DASATINIB [Suspect]
     Active Substance: DASATINIB
     Indication: B precursor type acute leukaemia
     Dosage: UNK
     Route: 065
     Dates: start: 2019
  17. MERCAPTOPURINE [Suspect]
     Active Substance: MERCAPTOPURINE
     Indication: B precursor type acute leukaemia
     Dosage: UNK PART OF POMP REGIMEN
     Route: 065
     Dates: start: 201908
  18. PREDNISONE [Suspect]
     Active Substance: PREDNISONE
     Indication: B precursor type acute leukaemia
     Dosage: UNK PART OF POMP REGIMEN
     Route: 065
     Dates: start: 201908
  19. CYTARABINE [Suspect]
     Active Substance: CYTARABINE
     Indication: B precursor type acute leukaemia
     Dosage: UNK EVERY 2 WEEKS FOR FIVE CYCLES
     Route: 065
     Dates: start: 2020
  20. ETOPOSIDE [Suspect]
     Active Substance: ETOPOSIDE
     Indication: B precursor type acute leukaemia
     Dosage: UNK
     Route: 065
     Dates: start: 202101
  21. IFOSFAMIDE [Suspect]
     Active Substance: IFOSFAMIDE
     Indication: B precursor type acute leukaemia
     Dosage: UNK
     Route: 065
     Dates: start: 202101
  22. MITOXANTRONE [Suspect]
     Active Substance: MITOXANTRONE HYDROCHLORIDE
     Indication: B precursor type acute leukaemia
     Dosage: UNK
     Route: 065
     Dates: start: 202101
  23. PERCOCET [Concomitant]
     Active Substance: ACETAMINOPHEN\OXYCODONE HYDROCHLORIDE
     Indication: Product used for unknown indication
     Dosage: UNK
     Route: 065

REACTIONS (3)
  - Strongyloidiasis [Recovered/Resolved]
  - Pulmonary oedema [Unknown]
  - Pericardial effusion [Unknown]
